FAERS Safety Report 21131993 (Version 1)
Quarter: 2022Q3

REPORT INFORMATION
  Report Type: Spontaneous
  Country: US (occurrence: US)
  Receive Date: 20220726
  Receipt Date: 20220726
  Transmission Date: 20221026
  Serious: No
  Sender: FDA-Public Use
  Company Number: US-Osmotica_Pharmaceutical_US_LLC-POI0573202100348

PATIENT
  Sex: Female

DRUGS (3)
  1. DIVIGEL [Suspect]
     Active Substance: ESTRADIOL
     Indication: Menopausal symptoms
     Route: 062
     Dates: start: 202106, end: 20210821
  2. DIVIGEL [Suspect]
     Active Substance: ESTRADIOL
     Route: 062
     Dates: start: 20210822, end: 20210825
  3. PROGESTERONE [Suspect]
     Active Substance: PROGESTERONE
     Indication: Menopausal symptoms
     Dates: start: 202106, end: 20210825

REACTIONS (3)
  - Diarrhoea [Not Recovered/Not Resolved]
  - Abdominal pain [Not Recovered/Not Resolved]
  - Flatulence [Not Recovered/Not Resolved]

NARRATIVE: CASE EVENT DATE: 20210601
